FAERS Safety Report 6372780-X (Version None)
Quarter: 2009Q3

REPORT INFORMATION
  Report Type: 
  Country: None (occurrence: None)
  Receive Date: 20090924
  Receipt Date: 20090625
  Transmission Date: 20100115
  Serious: No
  Sender: FDA-Public Use
  Company Number: US-ASTRAZENECA-2008UW25025

PATIENT
  Age: 766 Month
  Sex: Male
  Weight: 104.3 kg

DRUGS (1)
  1. SEROQUEL [Suspect]
     Indication: POST-TRAUMATIC STRESS DISORDER
     Route: 048
     Dates: start: 20050622, end: 20070606

REACTIONS (4)
  - BLOOD CHOLESTEROL INCREASED [None]
  - BLOOD TRIGLYCERIDES INCREASED [None]
  - DIABETES MELLITUS [None]
  - OBESITY [None]
